FAERS Safety Report 7801274-7 (Version None)
Quarter: 2011Q4

REPORT INFORMATION
  Report Type: 
  Country: None (occurrence: None)
  Receive Date: 20111007
  Receipt Date: 20110929
  Transmission Date: 20120403
  Serious: No
  Sender: FDA-Public Use
  Company Number: US-BIOGENIDEC-2011BI037524

PATIENT
  Age: 52 Year
  Sex: Female

DRUGS (3)
  1. TRAMADOL HCL [Concomitant]
     Indication: NEUROPATHY PERIPHERAL
  2. GABAPENTIN [Concomitant]
     Indication: NEUROPATHY PERIPHERAL
  3. AVONEX [Suspect]
     Indication: MULTIPLE SCLEROSIS
     Route: 030
     Dates: start: 20110907, end: 20110907

REACTIONS (4)
  - JOINT SWELLING [None]
  - PAIN IN EXTREMITY [None]
  - DIARRHOEA [None]
  - DECUBITUS ULCER [None]
